FAERS Safety Report 21034938 (Version 1)
Quarter: 2022Q3

REPORT INFORMATION
  Report Type: Spontaneous
  Country: DE (occurrence: DE)
  Receive Date: 20220701
  Receipt Date: 20220701
  Transmission Date: 20221027
  Serious: Yes (Disabling)
  Sender: FDA-Public Use
  Company Number: DE-DCGMA-22198450

PATIENT
  Age: 60 Year
  Sex: Male
  Weight: 83 kg

DRUGS (1)
  1. DARZALEX [Suspect]
     Active Substance: DARATUMUMAB
     Indication: Plasma cell myeloma
     Route: 042

REACTIONS (1)
  - Sudden hearing loss [Unknown]

NARRATIVE: CASE EVENT DATE: 20220503
